FAERS Safety Report 8561484-0 (Version None)
Quarter: 2012Q3

REPORT INFORMATION
  Report Type: 
  Country: None (occurrence: None)
  Receive Date: 20120802
  Receipt Date: 20120719
  Transmission Date: 20120928
  Serious: No
  Sender: FDA-Public Use
  Company Number: US-ASTRAZENECA-2012SE51179

PATIENT
  Age: 43 Year
  Sex: Female

DRUGS (1)
  1. VIMOVO [Suspect]
     Dosage: 500 MG/20 MG
     Route: 048

REACTIONS (4)
  - DRUG DOSE OMISSION [None]
  - JOINT INJURY [None]
  - MUSCULOSKELETAL PAIN [None]
  - INFLAMMATION [None]
